FAERS Safety Report 20717480 (Version 1)
Quarter: 2022Q2

REPORT INFORMATION
  Report Type: Spontaneous
  Country: ES (occurrence: ES)
  Receive Date: 20220417
  Receipt Date: 20220417
  Transmission Date: 20220721
  Serious: Yes (Hospitalization)
  Sender: FDA-Public Use
  Company Number: None

PATIENT
  Age: 82 Year
  Sex: Male

DRUGS (2)
  1. LOSARTAN [Suspect]
     Active Substance: LOSARTAN
     Dosage: LOSARTAN (7157A)
     Route: 065
     Dates: start: 20201209
  2. LORAZEPAM [Suspect]
     Active Substance: LORAZEPAM
     Dosage: LORAZEPAM (1864A)
     Route: 065
     Dates: start: 20210115

REACTIONS (1)
  - Salivary hypersecretion [Recovered/Resolved]

NARRATIVE: CASE EVENT DATE: 20210703
